FAERS Safety Report 21113975 (Version 1)
Quarter: 2022Q3

REPORT INFORMATION
  Report Type: Spontaneous
  Country: US (occurrence: None)
  Receive Date: 20220721
  Receipt Date: 20220721
  Transmission Date: 20221027
  Serious: No
  Sender: FDA-Public Use
  Company Number: None

PATIENT

DRUGS (2)
  1. TROPICAMIDE [Suspect]
     Active Substance: TROPICAMIDE
     Route: 047
  2. ATROPINE SULFATE [Suspect]
     Active Substance: ATROPINE SULFATE
     Route: 047

REACTIONS (2)
  - Product packaging confusion [None]
  - Intercepted product storage error [None]
